FAERS Safety Report 7885263-2 (Version None)
Quarter: 2011Q4

REPORT INFORMATION
  Report Type: 
  Country: None (occurrence: None)
  Receive Date: 20111102
  Receipt Date: 20111026
  Transmission Date: 20120403
  Serious: Yes (Other)
  Sender: FDA-Public Use
  Company Number: CHPA2011US14988

PATIENT
  Age: 88 Year
  Sex: Female
  Weight: 43.537 kg

DRUGS (11)
  1. TRANSDERM SCOP [Suspect]
     Indication: MOTION SICKNESS
     Dosage: 1 DF, ONCE/SINGLE
     Route: 062
     Dates: start: 20111023, end: 20111026
  2. ASPIRIN [Concomitant]
     Dosage: 81 MG, QD
  3. SYNTHROID [Concomitant]
     Indication: HYPOTHYROIDISM
     Dosage: 50 MCG, QD
  4. CELEXA [Concomitant]
     Indication: GENERALISED ANXIETY DISORDER
     Dosage: 10 MG, QD
  5. CELEXA [Concomitant]
     Indication: DEPRESSION
  6. LOMOTIL [Concomitant]
     Indication: DIARRHOEA
     Dosage: UNK
  7. VITAMIN D [Concomitant]
     Indication: SUPPLEMENTATION THERAPY
     Dosage: 1 DF, QD
  8. TRANSDERM SCOP [Suspect]
     Dosage: UNK, UNK
     Route: 062
  9. EXELON [Suspect]
     Indication: DEMENTIA ALZHEIMER'S TYPE
     Dosage: 4.6 MG, QD
     Route: 062
     Dates: start: 20110801
  10. PREVACID [Concomitant]
     Indication: ULCER
     Dosage: 30 MG, QD
  11. VITAMIN B-12 [Concomitant]
     Indication: SUPPLEMENTATION THERAPY
     Dosage: 1 DF, QD

REACTIONS (4)
  - MEMORY IMPAIRMENT [None]
  - CONFUSIONAL STATE [None]
  - DEMENTIA ALZHEIMER'S TYPE [None]
  - INCORRECT DRUG ADMINISTRATION DURATION [None]
